FAERS Safety Report 24389975 (Version 2)
Quarter: 2024Q4

REPORT INFORMATION
  Report Type: Spontaneous
  Country: US (occurrence: US)
  Receive Date: 20241003
  Receipt Date: 20241015
  Transmission Date: 20250115
  Serious: No
  Sender: ABBVIE
  Company Number: US-ABBVIE-5945779

PATIENT
  Sex: Female

DRUGS (1)
  1. VRAYLAR [Suspect]
     Active Substance: CARIPRAZINE
     Indication: Major depression
     Dosage: FORM STRENGTH: 1.5 MILLIGRAM
     Route: 048

REACTIONS (2)
  - Hypersomnia [Not Recovered/Not Resolved]
  - Sedation [Not Recovered/Not Resolved]
